FAERS Safety Report 8480234-X (Version None)
Quarter: 2012Q2

REPORT INFORMATION
  Report Type: 
  Country: None (occurrence: None)
  Receive Date: 20120629
  Receipt Date: 20120625
  Transmission Date: 20120825
  Serious: Yes (Hospitalization)
  Sender: FDA-Public Use
  Company Number: US-AMGEN-USASP2012039376

PATIENT
  Sex: Female

DRUGS (6)
  1. VITAMIN D [Concomitant]
     Dosage: 1 IU, UNK
  2. PREVACID [Concomitant]
  3. SYNTHROID [Concomitant]
  4. PROLIA [Suspect]
     Indication: OSTEOPOROSIS POSTMENOPAUSAL
  5. CARAFATE [Concomitant]
     Dosage: UNK
  6. OMEGA-3 FATTY ACIDS [Concomitant]
     Dosage: 2 MG, UNK

REACTIONS (5)
  - CHEST PAIN [None]
  - ARTHRALGIA [None]
  - ARTERIOGRAM CORONARY ABNORMAL [None]
  - BACK PAIN [None]
  - PAIN IN EXTREMITY [None]
